FAERS Safety Report 6111407-9 (Version None)
Quarter: 2009Q1

REPORT INFORMATION
  Report Type: 
  Country: None (occurrence: None)
  Receive Date: 20090309
  Receipt Date: 20090217
  Transmission Date: 20090719
  Serious: Yes (Hospitalization)
  Sender: FDA-Public Use
  Company Number: 2009EU000090

PATIENT
  Age: 35 Year
  Sex: Male
  Weight: 55 kg

DRUGS (10)
  1. PROTOPIC [Suspect]
     Indication: DERMATITIS ATOPIC
     Dosage: 0.1 %, UNK, TOPICAL
     Route: 061
     Dates: start: 20060301, end: 20061101
  2. PROTOPIC [Suspect]
     Indication: DERMATITIS ATOPIC
     Dosage: 0.1 %, UNK, TOPICAL
     Route: 061
     Dates: start: 20061101, end: 20081101
  3. NEORECORMON (EPOETIN BETA) [Concomitant]
  4. MIMPARA (CINACALCET HYDROCHLORIDE) [Concomitant]
  5. RENAGEL [Concomitant]
  6. DESLORATADINE [Concomitant]
  7. SERETIDE (SALMETEROL XINAFOATE, FLUTICASONE PROPIONATE) [Concomitant]
  8. OXEOL (BAMBUTEROL HYDROCHLORIDE) [Concomitant]
  9. VENTOLINE (SALBUTAMOL SULFATE) [Concomitant]
  10. SINGULAIR [Concomitant]

REACTIONS (1)
  - ECZEMA HERPETICUM [None]
